FAERS Safety Report 8516640-4 (Version None)
Quarter: 2012Q2

REPORT INFORMATION
  Report Type: 
  Country: None (occurrence: None)
  Receive Date: 20120406
  Receipt Date: 20090527
  Transmission Date: 20120825
  Serious: Yes (Hospitalization, Other)
  Sender: FDA-Public Use
  Company Number: PHEH2009US04406

PATIENT
  Age: 45 Year
  Sex: Male

DRUGS (5)
  1. GLEEVEC [Suspect]
     Indication: CHRONIC MYELOID LEUKAEMIA
  2. NEXIUM [Concomitant]
  3. ASPIRIN [Concomitant]
  4. TASIGNA [Suspect]
     Indication: CHRONIC MYELOID LEUKAEMIA
     Dosage: 400 MG, Q12H, ORAL
     Route: 048
     Dates: start: 20080401, end: 20090401
  5. ZETIA [Concomitant]

REACTIONS (8)
  - ACUTE MYOCARDIAL INFARCTION [None]
  - CORONARY ARTERY STENOSIS [None]
  - DYSLIPIDAEMIA [None]
  - HAEMOGLOBIN DECREASED [None]
  - PAIN IN EXTREMITY [None]
  - STENT PLACEMENT [None]
  - HAEMATOCRIT DECREASED [None]
  - ARTERIOSCLEROSIS CORONARY ARTERY [None]
